FAERS Safety Report 12359418 (Version 1)
Quarter: 2016Q2

REPORT INFORMATION
  Report Type: Spontaneous
  Country: RU (occurrence: RU)
  Receive Date: 20160512
  Receipt Date: 20160512
  Transmission Date: 20160815
  Serious: Yes (Life-Threatening, Other)
  Sender: FDA-Public Use
  Company Number: RU-SHIONOGI, INC-2013000425

PATIENT
  Age: 74 Year
  Sex: Female

DRUGS (1)
  1. DORIPREX [Suspect]
     Active Substance: DORIPENEM
     Dosage: UNK
     Route: 041

REACTIONS (5)
  - Off label use [Recovering/Resolving]
  - Urinary retention [Recovering/Resolving]
  - Hypotension [Recovering/Resolving]
  - Anaphylactic shock [Recovering/Resolving]
  - Rash maculo-papular [Recovering/Resolving]
